FAERS Safety Report 14990953 (Version 1)
Quarter: 2018Q2

REPORT INFORMATION
  Report Type: Spontaneous
  Country: US (occurrence: US)
  Receive Date: 20180608
  Receipt Date: 20180608
  Transmission Date: 20180711
  Serious: No
  Sender: FDA-Public Use
  Company Number: US-PFIZER INC-2018229696

PATIENT
  Age: 74 Year
  Sex: Female

DRUGS (1)
  1. XELJANZ XR [Suspect]
     Active Substance: TOFACITINIB CITRATE
     Dosage: 11 MG, 1X/DAY (QD)

REACTIONS (7)
  - Arthropathy [Unknown]
  - Crepitations [Unknown]
  - Nodal osteoarthritis [Unknown]
  - Arthralgia [Unknown]
  - Joint swelling [Unknown]
  - Synovial disorder [Unknown]
  - Pain in extremity [Unknown]
